FAERS Safety Report 9701051 (Version 1)
Quarter: 2013Q4

REPORT INFORMATION
  Report Type: Spontaneous
  Country: US (occurrence: None)
  Receive Date: 20131119
  Receipt Date: 20131119
  Transmission Date: 20140711
  Serious: Yes (Death, Hospitalization)
  Sender: FDA-Public Use
  Company Number: 1713747-2013-99976

PATIENT
  Sex: Male

DRUGS (4)
  1. DELFLEX 2.5 % DEX. LM/LC 5 L, 2-PK [Suspect]
     Indication: RENAL FAILURE CHRONIC
  2. DELFLEX 2.5 % DEX. LM/LC 5 L, 2-PK [Suspect]
     Indication: PERITONEAL DIALYSIS
  3. LIBERTY CYCLER [Concomitant]
  4. LIBERTY TUBING [Concomitant]

REACTIONS (4)
  - Intracranial aneurysm [None]
  - Headache [None]
  - Neck pain [None]
  - Vomiting [None]
